FAERS Safety Report 9557238 (Version 2)
Quarter: 2013Q4

REPORT INFORMATION
  Report Type: Spontaneous
  Country: JP (occurrence: JP)
  Receive Date: 20130926
  Receipt Date: 20131031
  Transmission Date: 20140711
  Serious: Yes (Death)
  Sender: FDA-Public Use
  Company Number: JP-ASTRAZENECA-2013SE71546

PATIENT
  Age: 61 Year
  Sex: Female
  Weight: 60 kg

DRUGS (15)
  1. NEXIUM [Suspect]
     Indication: PROPHYLAXIS AGAINST GASTROINTESTINAL ULCER
     Route: 048
     Dates: start: 20130614, end: 20130812
  2. FERON [Suspect]
     Indication: ACUTE HEPATITIS B
     Route: 042
     Dates: start: 20130615, end: 20130713
  3. BANAN [Concomitant]
     Indication: INFECTION PROPHYLAXIS
     Route: 048
     Dates: start: 20130614, end: 20130812
  4. ALESION [Concomitant]
     Indication: RASH
     Route: 048
     Dates: start: 20130704, end: 20130812
  5. VOLTAREN [Concomitant]
     Indication: PYREXIA
     Dosage: 25 MG, AT THE ONSET OF PYREXIA
     Route: 054
     Dates: start: 20130627, end: 20130812
  6. PORTOLAC [Concomitant]
     Indication: HEPATIC ENCEPHALOPATHY
     Route: 048
     Dates: start: 20130616, end: 20130812
  7. PROMAC [Concomitant]
     Indication: PROPHYLAXIS AGAINST GASTROINTESTINAL ULCER
     Route: 048
     Dates: start: 20130624, end: 20130812
  8. BARACLUDE [Concomitant]
     Indication: ACUTE HEPATITIS B
     Route: 048
     Dates: start: 20130611, end: 20130812
  9. DENOSINE [Concomitant]
     Indication: CYTOMEGALOVIRUS INFECTION
     Route: 041
     Dates: start: 20130711, end: 20130726
  10. SEISHOKU [Concomitant]
     Route: 041
     Dates: start: 20130711, end: 20130726
  11. ZOSYN [Concomitant]
     Route: 041
     Dates: start: 20130706, end: 20130719
  12. PHYSIOLOGICAL SALINE SOLUTION [Concomitant]
     Route: 041
     Dates: start: 20130706, end: 20130719
  13. FUTHAN [Concomitant]
     Route: 041
     Dates: start: 20130610, end: 20130705
  14. SOLU_MEDROL [Concomitant]
     Route: 041
     Dates: start: 20130614, end: 20130616
  15. PREDONINE [Concomitant]
     Route: 041
     Dates: start: 20130617, end: 20130624

REACTIONS (1)
  - Interstitial lung disease [Fatal]
